FAERS Safety Report 5330400-7 (Version None)
Quarter: 2007Q2

REPORT INFORMATION
  Report Type: 
  Country: None (occurrence: None)
  Receive Date: 20070521
  Receipt Date: 20070511
  Transmission Date: 20071010
  Serious: Yes (Other)
  Sender: FDA-Public Use
  Company Number: IE-PFIZER INC-2007032274

PATIENT
  Age: 41 Year
  Sex: Female
  Weight: 50 kg

DRUGS (1)
  1. XALATAN [Suspect]
     Route: 061
     Dates: start: 20070311, end: 20070407

REACTIONS (15)
  - DIARRHOEA [None]
  - DIZZINESS [None]
  - ENERGY INCREASED [None]
  - FATIGUE [None]
  - FLUSHING [None]
  - HEART RATE INCREASED [None]
  - HYPERTRICHOSIS [None]
  - INSOMNIA [None]
  - MEMORY IMPAIRMENT [None]
  - MENSTRUATION IRREGULAR [None]
  - NAUSEA [None]
  - PALPITATIONS [None]
  - RETINAL TEAR [None]
  - TINNITUS [None]
  - WEIGHT DECREASED [None]
